FAERS Safety Report 17173005 (Version 1)
Quarter: 2019Q4

REPORT INFORMATION
  Report Type: Report from Study
  Country: DE (occurrence: DE)
  Receive Date: 20191219
  Receipt Date: 20191219
  Transmission Date: 20200122
  Serious: Yes (Hospitalization)
  Sender: FDA-Public Use
  Company Number: DE-ROCHE-2496926

PATIENT
  Age: 59 Year
  Sex: Male

DRUGS (19)
  1. TORASEMIDE [Concomitant]
     Active Substance: TORSEMIDE
  2. DEKRISTOL [Concomitant]
     Active Substance: CHOLECALCIFEROL
  3. PIRFENIDONE. [Suspect]
     Active Substance: PIRFENIDONE
     Indication: OBLITERATIVE BRONCHIOLITIS
     Dosage: 9 TABLETS PER DAY
     Route: 048
     Dates: start: 20180227, end: 20180621
  4. MUCOCLEAR [AMBROXOL HYDROCHLORIDE] [Concomitant]
  5. METOPROLOL. [Concomitant]
     Active Substance: METOPROLOL
  6. PROGRAF [Concomitant]
     Active Substance: TACROLIMUS
  7. CELLSEPT [Concomitant]
     Active Substance: MYCOPHENOLATE MOFETIL
  8. MAGNESIUM [Concomitant]
     Active Substance: MAGNESIUM
  9. AZITHROMYCIN ANHYDROUS. [Concomitant]
     Active Substance: AZITHROMYCIN ANHYDROUS
  10. NOVALGIN (METAMIZOLE SODIUM) [Concomitant]
     Active Substance: METAMIZOLE SODIUM
  11. FOLIC ACID. [Concomitant]
     Active Substance: FOLIC ACID
  12. PREDNISOLONE. [Concomitant]
     Active Substance: PREDNISOLONE
  13. ITRACONAZOLE. [Concomitant]
     Active Substance: ITRACONAZOLE
  14. NOVORAPID [Concomitant]
     Active Substance: INSULIN ASPART
  15. COTRIMOXAZOLE [Concomitant]
     Active Substance: SULFAMETHOXAZOLE\TRIMETHOPRIM
  16. ENALAPRIL [Concomitant]
     Active Substance: ENALAPRIL
  17. PANTOZOL [Concomitant]
     Active Substance: PANTOPRAZOLE SODIUM
  18. TAMULOSIN [Concomitant]
     Active Substance: TAMSULOSIN
  19. LANTUS [Concomitant]
     Active Substance: INSULIN GLARGINE

REACTIONS (1)
  - Transplant rejection [Recovered/Resolved]

NARRATIVE: CASE EVENT DATE: 20180621
